FAERS Safety Report 10229205 (Version 2)
Quarter: 2014Q2

REPORT INFORMATION
  Report Type: Spontaneous
  Country: US (occurrence: US)
  Receive Date: 20140611
  Receipt Date: 20140626
  Transmission Date: 20141212
  Serious: Yes (Other)
  Sender: FDA-Public Use
  Company Number: US-ROCHE-1415903

PATIENT
  Age: 65 Year
  Sex: Male

DRUGS (1)
  1. XOLAIR [Suspect]
     Indication: ASTHMA
     Route: 058
     Dates: start: 20140603

REACTIONS (9)
  - Urticaria [Unknown]
  - Pruritus [Unknown]
  - Pruritus [Unknown]
  - Abdominal discomfort [Unknown]
  - Anxiety [Unknown]
  - Dysgeusia [Unknown]
  - Fatigue [Unknown]
  - Palpitations [Unknown]
  - Gastroenteritis viral [Unknown]
